FAERS Safety Report 14735252 (Version 2)
Quarter: 2018Q2

REPORT INFORMATION
  Report Type: Spontaneous
  Country: DK (occurrence: DK)
  Receive Date: 20180409
  Receipt Date: 20180528
  Transmission Date: 20180711
  Serious: Yes (Hospitalization, Disabling)
  Sender: FDA-Public Use
  Company Number: DK-TEVA-2018-DK-878873

PATIENT
  Sex: Female

DRUGS (2)
  1. NEOTIGASON [Suspect]
     Active Substance: ACITRETIN
     Route: 065
     Dates: end: 201510
  2. NEOTIGASON [Suspect]
     Active Substance: ACITRETIN
     Route: 065
     Dates: start: 2015

REACTIONS (5)
  - Cognitive disorder [Unknown]
  - Gait disturbance [Not Recovered/Not Resolved]
  - Peripheral sensory neuropathy [Not Recovered/Not Resolved]
  - Muscular weakness [Not Recovered/Not Resolved]
  - Sensory loss [Not Recovered/Not Resolved]

NARRATIVE: CASE EVENT DATE: 2015
